FAERS Safety Report 8757017 (Version 1)
Quarter: 2012Q4

REPORT INFORMATION
  Report Type: Report from Study
  Country: US (occurrence: US)
  Receive Date: 20120828
  Receipt Date: 20120828
  Transmission Date: 20130627
  Serious: Yes (Other)
  Sender: FDA-Public Use
  Company Number: US-ABBOTT-12P-163-0971216-00

PATIENT
  Sex: Male
  Weight: 127.12 kg

DRUGS (5)
  1. NIASPAN (COATED) 1000MG [Suspect]
     Indication: BLOOD CHOLESTEROL INCREASED
     Dates: start: 2007
  2. LOBETALOL [Concomitant]
     Indication: HYPERTENSION
  3. LIPITOR [Concomitant]
     Indication: BLOOD CHOLESTEROL INCREASED
  4. POTASSIUM [Concomitant]
     Indication: PRODUCT USED FOR UNKNOWN INDICATION
  5. DIOVAN HCT [Concomitant]
     Indication: HYPERTENSION

REACTIONS (3)
  - Osteoarthritis [Recovered/Resolved]
  - Rash [Recovered/Resolved]
  - Flushing [Recovered/Resolved]
